FAERS Safety Report 5869052-6 (Version None)
Quarter: 2008Q3

REPORT INFORMATION
  Report Type: 
  Country: None (occurrence: None)
  Receive Date: 20080903
  Receipt Date: 20080901
  Transmission Date: 20090109
  Serious: Yes (Other)
  Sender: FDA-Public Use
  Company Number: B0533125A

PATIENT
  Age: 33 Year
  Sex: Male

DRUGS (5)
  1. PAXIL [Suspect]
     Indication: DEPRESSION
     Dosage: 15MG PER DAY
     Route: 048
     Dates: start: 20071228
  2. DOGMATYL [Concomitant]
     Route: 065
  3. SENIRAN [Concomitant]
     Route: 065
  4. DEPAS [Concomitant]
     Route: 048
  5. HALCION [Concomitant]
     Route: 048

REACTIONS (2)
  - DERMATITIS BULLOUS [None]
  - PRURIGO [None]
